FAERS Safety Report 8881597 (Version 2)
Quarter: 2012Q4

REPORT INFORMATION
  Report Type: Report from Study
  Country: JP (occurrence: JP)
  Receive Date: 20121102
  Receipt Date: 20121219
  Transmission Date: 20130627
  Serious: Yes (Death, Hospitalization, Other)
  Sender: FDA-Public Use
  Company Number: JP-ASTELLAS-2012US010706

PATIENT
  Age: 50 Year
  Sex: Female

DRUGS (11)
  1. ERLOTINIB TABLET [Suspect]
     Indication: PANCREATIC CARCINOMA
     Dosage: 100 mg, UID/QD
     Route: 048
     Dates: start: 20120816, end: 20120819
  2. ERLOTINIB TABLET [Suspect]
     Dosage: 100 mg, UID/QD
     Route: 048
     Dates: start: 20120911, end: 20120916
  3. GEMCITABINE [Suspect]
     Indication: ADENOCARCINOMA PANCREAS
     Dosage: 1000 mg/m2, UID/QD
     Route: 041
     Dates: start: 20120820, end: 20120820
  4. GEMCITABINE [Suspect]
     Dosage: 1000 mg/m2, UID/QD
     Route: 041
     Dates: start: 20120827, end: 20120827
  5. LOXONIN [Concomitant]
     Indication: ADENOCARCINOMA PANCREAS
     Dosage: 180 mg, UID/QD
     Route: 048
     Dates: start: 20121002
  6. GASTER [Concomitant]
     Indication: ADENOCARCINOMA PANCREAS
     Dosage: 20 mg, UID/QD
     Route: 048
     Dates: end: 20121002
  7. PRIMPERAN [Concomitant]
     Indication: ADENOCARCINOMA PANCREAS
     Dosage: 15 mg, UID/QD
     Route: 048
     Dates: end: 20121002
  8. FENTOS [Concomitant]
     Indication: ADENOCARCINOMA PANCREAS
     Dosage: 2 mg, Unknown/D
     Route: 065
     Dates: end: 20121007
  9. ALDACTONE A [Concomitant]
     Indication: PRODUCT USED FOR UNKNOWN INDICATION
     Dosage: 25 mg, UID/QD
     Route: 048
     Dates: end: 20121002
  10. MERCAZOLE [Concomitant]
     Indication: PRODUCT USED FOR UNKNOWN INDICATION
     Dosage: 15 mg, UID/QD
     Route: 048
     Dates: end: 20121002
  11. MAGMITT [Concomitant]
     Indication: PRODUCT USED FOR UNKNOWN INDICATION
     Dosage: 1500 mg, UID/QD
     Route: 048
     Dates: end: 20121002

REACTIONS (9)
  - Death [Fatal]
  - Gastrointestinal haemorrhage [Recovering/Resolving]
  - Gastrointestinal haemorrhage [Recovering/Resolving]
  - Portal vein stenosis [Unknown]
  - Gastrooesophageal reflux disease [Not Recovered/Not Resolved]
  - Vomiting [Recovering/Resolving]
  - Duodenal stenosis [Unknown]
  - Platelet count decreased [Recovered/Resolved]
  - Hepatic failure [Unknown]
